FAERS Safety Report 5982008-8 (Version None)
Quarter: 2008Q4

REPORT INFORMATION
  Report Type: 
  Country: None (occurrence: None)
  Receive Date: 20081205
  Receipt Date: 20080225
  Transmission Date: 20090506
  Serious: No
  Sender: FDA-Public Use
  Company Number: US-AMGEN-KDL265415

PATIENT
  Sex: Female

DRUGS (1)
  1. ENBREL [Suspect]
     Indication: RHEUMATOID ARTHRITIS
     Route: 058
     Dates: start: 20080131

REACTIONS (4)
  - GENITAL HAEMORRHAGE [None]
  - HEADACHE [None]
  - MIGRAINE [None]
  - PAIN IN EXTREMITY [None]
